FAERS Safety Report 4675704-6 (Version None)
Quarter: 2005Q2

REPORT INFORMATION
  Report Type: 
  Country: None (occurrence: None)
  Receive Date: 20050527
  Receipt Date: 20050208
  Transmission Date: 20051028
  Serious: Yes (Other)
  Sender: FDA-Public Use
  Company Number: US-BRISTOL-MYERS SQUIBB COMPANY-12852901

PATIENT
  Sex: Male

DRUGS (1)
  1. ERBITUX [Suspect]
     Indication: NON-SMALL CELL LUNG CANCER
     Dosage: 400 MG PER LITER SQUARED.
     Route: 042
     Dates: start: 20050201

REACTIONS (2)
  - BLOOD PRESSURE DECREASED [None]
  - DYSPNOEA [None]
